FAERS Safety Report 21711700 (Version 1)
Quarter: 2022Q4

REPORT INFORMATION
  Report Type: Spontaneous
  Country: JP (occurrence: JP)
  Receive Date: 20221212
  Receipt Date: 20221212
  Transmission Date: 20230113
  Serious: Yes (Other)
  Sender: FDA-Public Use
  Company Number: JP-SUN PHARMACEUTICAL INDUSTRIES LTD-2022R1-358731

PATIENT
  Age: 27 Year
  Sex: Female

DRUGS (1)
  1. NAPROXEN [Suspect]
     Active Substance: NAPROXEN
     Indication: Erythema nodosum
     Dosage: 300 MILLIGRAM/MIN3
     Route: 048

REACTIONS (2)
  - Drug ineffective [Unknown]
  - Condition aggravated [Unknown]
